FAERS Safety Report 15367813 (Version 2)
Quarter: 2018Q3

REPORT INFORMATION
  Report Type: Report from Study
  Country: IR (occurrence: IR)
  Receive Date: 20180910
  Receipt Date: 20180919
  Transmission Date: 20181010
  Serious: Yes (Death)
  Sender: FDA-Public Use
  Company Number: IR-PFIZER INC-2018360092

PATIENT
  Sex: Female

DRUGS (9)
  1. ACTINOMYCIN D [Suspect]
     Active Substance: DACTINOMYCIN
     Indication: GESTATIONAL TROPHOBLASTIC TUMOUR
     Dosage: 0.5 MG, STAT (FIRST DAY)
     Route: 042
  2. ETOPOSIDE. [Suspect]
     Active Substance: ETOPOSIDE
     Dosage: 100 MG/M2 IN 500 ML NORMAL SALINE BY IV INFUSION OVER 30 MIN (SECOND DAY)
     Route: 042
  3. CISPLATIN. [Suspect]
     Active Substance: CISPLATIN
     Indication: GESTATIONAL TROPHOBLASTIC TUMOUR
     Dosage: 60?80 MG/ML; CYCLIC(EIGHTH DAY)
     Route: 042
  4. ACTINOMYCIN D [Suspect]
     Active Substance: DACTINOMYCIN
     Dosage: 0.5 MG, STAT (SECOND DAY)
     Route: 042
  5. CITROVORUM FACTOR [Concomitant]
     Active Substance: LEUCOVORIN
     Dosage: UNK UNK, CYCLIC
  6. ETOPOSIDE. [Suspect]
     Active Substance: ETOPOSIDE
     Indication: GESTATIONAL TROPHOBLASTIC TUMOUR
     Dosage: 100 MG/M2 IN 500 ML NORMAL SALINE BY IV INFUSION OVER 30 MIN (FIRST DAY)
     Route: 042
  7. ETOPOSIDE. [Suspect]
     Active Substance: ETOPOSIDE
     Dosage: 100 MG/M2 IN 500 ML NORMAL SALINE BY IV INFUSION OVER 30 MIN (EIGHTH DAY)
     Route: 042
  8. METHOTREXATE SODIUM. [Suspect]
     Active Substance: METHOTREXATE SODIUM
     Indication: GESTATIONAL TROPHOBLASTIC TUMOUR
     Dosage: 100 MG/M2, IV STAT; CYCLIC(FIRST DAY)
     Route: 042
  9. GRANULOCYTE COLONY STIMULATING FACTOR [Concomitant]
     Active Substance: GRANULOCYTE COLONY-STIMULATING FACTOR NOS
     Indication: PROPHYLAXIS
     Dosage: 24 HOURS AFTER COMPLETION OF EMA/EP CHEMOTHE

REACTIONS (2)
  - Second primary malignancy [Fatal]
  - Acute myeloid leukaemia [Fatal]
